FAERS Safety Report 6795041-3 (Version None)
Quarter: 2010Q2

REPORT INFORMATION
  Report Type: 
  Country: None (occurrence: None)
  Receive Date: 20100625
  Receipt Date: 20090603
  Transmission Date: 20101027
  Serious: Yes (Hospitalization)
  Sender: FDA-Public Use
  Company Number: TW-ROCHE-635779

PATIENT
  Sex: Male
  Weight: 62 kg

DRUGS (10)
  1. CAPECITABINE [Suspect]
     Indication: GASTRIC CANCER
     Dosage: LAST DOSE PRIOR TO THE SAE: 21/01/2008; FORM: FILM COATED TABLET
     Route: 048
     Dates: start: 20070907
  2. CAPECITABINE [Suspect]
     Route: 048
     Dates: start: 20081203
  3. ELOXATIN [Suspect]
     Indication: GASTRIC CANCER
     Dosage: FORM: INFUSION
     Route: 042
     Dates: start: 20070907
  4. ELOXATIN [Suspect]
     Route: 042
     Dates: start: 20081203
  5. AMINO ACID INJ [Concomitant]
     Dates: start: 20070907, end: 20080121
  6. VITAMIN B6 [Concomitant]
     Dates: start: 20070907, end: 20080121
  7. HEPARIN [Concomitant]
     Dosage: DOSE: 5000 IU
     Dates: start: 20070907, end: 20080121
  8. METOCLOPRAMIDE [Concomitant]
     Dates: start: 20081203, end: 20090112
  9. PROCHLORPERAZINE [Concomitant]
     Dates: start: 20081203, end: 20090112
  10. TROPISETRON [Concomitant]
     Dates: start: 20081203, end: 20090112

REACTIONS (3)
  - GASTRIC ULCER HAEMORRHAGE [None]
  - MALNUTRITION [None]
  - OBSTRUCTION GASTRIC [None]
